FAERS Safety Report 11861178 (Version 2)
Quarter: 2015Q4

REPORT INFORMATION
  Report Type: Spontaneous
  Country: CH (occurrence: CH)
  Receive Date: 20151222
  Receipt Date: 20151229
  Transmission Date: 20160305
  Serious: Yes (Death, Hospitalization, Other)
  Sender: FDA-Public Use
  Company Number: PHHY2015CH166236

PATIENT
  Age: 66 Year
  Sex: Male

DRUGS (8)
  1. MYCOPHENOLIC ACID. [Suspect]
     Active Substance: MYCOPHENOLIC ACID
     Indication: IMMUNOSUPPRESSANT DRUG THERAPY
  2. PREDNISONE. [Suspect]
     Active Substance: PREDNISONE
     Indication: IMMUNOSUPPRESSANT DRUG THERAPY
  3. MYCOPHENOLIC ACID. [Suspect]
     Active Substance: MYCOPHENOLIC ACID
     Indication: LIVER TRANSPLANT
     Route: 065
  4. SULFAMETHOXAZOLE AND TRIMETHOPRIM [Concomitant]
     Active Substance: SULFAMETHOXAZOLE\TRIMETHOPRIM
     Indication: PROPHYLAXIS
     Dosage: UNK
     Route: 065
     Dates: end: 201006
  5. PREDNISONE. [Suspect]
     Active Substance: PREDNISONE
     Indication: LIVER TRANSPLANT
     Route: 065
  6. TACROLIMUS. [Suspect]
     Active Substance: TACROLIMUS
     Indication: IMMUNOSUPPRESSANT DRUG THERAPY
  7. TACROLIMUS. [Suspect]
     Active Substance: TACROLIMUS
     Indication: LIVER TRANSPLANT
     Route: 065
  8. DOXORUBICIN [Concomitant]
     Active Substance: DOXORUBICIN
     Indication: HEPATOCELLULAR CARCINOMA
     Route: 065

REACTIONS (23)
  - Pyrexia [Recovered/Resolved]
  - Dyspnoea [Unknown]
  - Thrombocytopenia [Unknown]
  - Leukopenia [Unknown]
  - Splenomegaly [Unknown]
  - Fatigue [Unknown]
  - Multi-organ failure [Fatal]
  - Human herpesvirus 8 infection [Unknown]
  - Pyrexia [Unknown]
  - Hypoalbuminaemia [Unknown]
  - Hyperbilirubinaemia [Unknown]
  - Confusional state [Unknown]
  - Myalgia [Unknown]
  - Lymphadenopathy mediastinal [Unknown]
  - Hyperferritinaemia [Unknown]
  - Castleman^s disease [Unknown]
  - Anaemia [Unknown]
  - Gastroenteritis salmonella [Unknown]
  - Kaposi^s sarcoma [Unknown]
  - General physical health deterioration [Unknown]
  - Histiocytosis haematophagic [Unknown]
  - Pancytopenia [Unknown]
  - Acute kidney injury [Unknown]

NARRATIVE: CASE EVENT DATE: 201101
